FAERS Safety Report 12889875 (Version 2)
Quarter: 2016Q4

REPORT INFORMATION
  Report Type: Report from Study
  Country: CN (occurrence: CN)
  Receive Date: 20161027
  Receipt Date: 20161220
  Transmission Date: 20170207
  Serious: Yes (Other)
  Sender: FDA-Public Use
  Company Number: PHHY2015CN141043

PATIENT
  Age: 32 Year
  Sex: Male

DRUGS (101)
  1. POTASSIUM CHLORIDE. [Concomitant]
     Active Substance: POTASSIUM CHLORIDE
     Indication: MINERAL SUPPLEMENTATION
     Dosage: 10 ML (SINGLE DOSE), SOS
     Route: 042
     Dates: start: 20150529, end: 20150529
  2. VITAMIN B12 [Concomitant]
     Active Substance: CYANOCOBALAMIN
     Indication: NUTRITIONAL SUPPLEMENTATION
     Dosage: 1 DF, QD
     Route: 042
     Dates: start: 20150526, end: 20150605
  3. ATORVASTATIN CALCIUM. [Concomitant]
     Active Substance: ATORVASTATIN CALCIUM
     Indication: LIPIDS INCREASED
     Dosage: 20 MG, QN
     Route: 048
     Dates: start: 20150616, end: 20150709
  4. AMBROXOL HYDROCHLORIDE [Concomitant]
     Active Substance: AMBROXOL HYDROCHLORIDE
     Indication: COUGH
     Dosage: 30 MG, BID
     Route: 042
     Dates: start: 20150526, end: 20160605
  5. COMPOUND SODIUM CHLORIDE [Concomitant]
     Indication: FLUID IMBALANCE
     Dosage: 3000 ML, SOS
     Route: 042
     Dates: start: 20150526, end: 20150530
  6. COMPOUND SODIUM CHLORIDE [Concomitant]
     Dosage: 500 ML, SOS
     Route: 042
     Dates: start: 20150621, end: 20150621
  7. COMPOUND SODIUM CHLORIDE [Concomitant]
     Dosage: 500 ML, SOS
     Route: 042
     Dates: start: 20150622, end: 20150622
  8. SODIUM CHLORIDE + GLUCOSE [Concomitant]
     Dosage: 500 ML, SOS
     Route: 042
     Dates: start: 20150527, end: 20150527
  9. SODIUM CHLORIDE. [Concomitant]
     Active Substance: SODIUM CHLORIDE
     Indication: ENEMA ADMINISTRATION
     Dosage: 500 ML, SOS
     Route: 050
     Dates: start: 20150525, end: 20150525
  10. INSULIN [Concomitant]
     Active Substance: INSULIN NOS
     Dosage: 50 IU, SOS
     Route: 042
     Dates: start: 20150615, end: 20150615
  11. PENICILLIN [Concomitant]
     Active Substance: PENICILLIN
     Indication: INFLAMMATION
     Dosage: 12.8 MIU, SOS
     Route: 023
     Dates: start: 20150816, end: 20150816
  12. PANTOPRAZOLE SODIUM. [Concomitant]
     Active Substance: PANTOPRAZOLE SODIUM
     Dosage: 40 MG, SOS
     Route: 042
     Dates: start: 20150527, end: 20150527
  13. PANTOPRAZOLE SODIUM. [Concomitant]
     Active Substance: PANTOPRAZOLE SODIUM
     Dosage: 40 MG, SOS
     Route: 042
     Dates: start: 20150529, end: 20150529
  14. FUROSEMIDE. [Concomitant]
     Active Substance: FUROSEMIDE
     Dosage: 60 MG, SOS
     Route: 042
     Dates: start: 20150530, end: 20150530
  15. BASILIXIMAB [Suspect]
     Active Substance: BASILIXIMAB
     Dosage: 20 MG, QD
     Route: 065
     Dates: start: 20150530, end: 20150530
  16. BERAPROST SODIUM [Concomitant]
     Active Substance: BERAPROST SODIUM
     Indication: CARDIOVASCULAR DISORDER
     Dosage: 40 UG, TID
     Route: 048
     Dates: start: 20150605, end: 20150610
  17. COMPOUND SODIUM CHLORIDE [Concomitant]
     Dosage: 500 ML, SOS
     Route: 042
     Dates: start: 20150623, end: 20150623
  18. INSULIN [Concomitant]
     Active Substance: INSULIN NOS
     Dosage: 12 IU, SOS
     Route: 042
     Dates: start: 20150616, end: 20150616
  19. ZUO KE [Concomitant]
     Active Substance: LEVOFLOXACIN
     Indication: INFLAMMATION
     Dosage: 0.3 G, PRN
     Route: 042
     Dates: start: 20150630, end: 20150630
  20. PANTOPRAZOLE SODIUM. [Concomitant]
     Active Substance: PANTOPRAZOLE SODIUM
     Dosage: 40 MG, SOS
     Route: 042
     Dates: start: 20150616, end: 20150616
  21. LEVOCARNITINE. [Concomitant]
     Active Substance: LEVOCARNITINE
     Indication: NUTRITIONAL SUPPLEMENTATION
     Dosage: 1 G, QW
     Route: 042
     Dates: start: 20150525, end: 20150526
  22. FUROSEMIDE. [Concomitant]
     Active Substance: FUROSEMIDE
     Indication: POLYURIA
     Dosage: 10 MG, SOS
     Route: 042
     Dates: start: 20150601, end: 20150601
  23. PREDNISONE. [Suspect]
     Active Substance: PREDNISONE
     Indication: PRODUCT USED FOR UNKNOWN INDICATION
     Dosage: 20 MG, QD
     Route: 065
     Dates: start: 20150528, end: 20150605
  24. TACROLIMUS. [Suspect]
     Active Substance: TACROLIMUS
     Dosage: 4 MG, QD
     Route: 065
     Dates: start: 20150527
  25. GANCICLOVIR. [Concomitant]
     Active Substance: GANCICLOVIR
     Indication: ANTIVIRAL PROPHYLAXIS
     Dosage: 250 MG, QD
     Route: 042
     Dates: start: 20150608, end: 20150617
  26. GLUCOSE [Concomitant]
     Active Substance: DEXTROSE
     Indication: DEHYDRATION
     Dosage: 500 ML, SOS
     Route: 042
     Dates: start: 20150529, end: 20150529
  27. PHENOBARBITAL. [Concomitant]
     Active Substance: PHENOBARBITAL
     Indication: SEDATIVE THERAPY
     Dosage: 0.1 G, SOS
     Route: 030
     Dates: start: 20150525, end: 20150525
  28. COMPOUND SODIUM CHLORIDE [Concomitant]
     Dosage: 500 ML, SOS
     Route: 042
     Dates: start: 20150616, end: 20150616
  29. CHLORHEXIDINE [Concomitant]
     Active Substance: CHLORHEXIDINE
     Indication: DENTAL CLEANING
     Dosage: UNK UNK, QN
     Route: 049
     Dates: start: 20150526, end: 20150828
  30. SODIUM CHLORIDE + GLUCOSE [Concomitant]
     Dosage: 500 ML, SOS
     Route: 042
     Dates: start: 20150529, end: 20150529
  31. SODIUM CHLORIDE + GLUCOSE [Concomitant]
     Dosage: 500 ML, SOS
     Route: 042
     Dates: start: 20150621, end: 20150621
  32. SODIUM CHLORIDE + GLUCOSE [Concomitant]
     Dosage: 500 ML, SOS
     Route: 042
     Dates: start: 20150623, end: 20150623
  33. INSULIN [Concomitant]
     Active Substance: INSULIN NOS
     Indication: PROPHYLAXIS
     Dosage: 12 IU, SOS
     Route: 042
     Dates: start: 20150526, end: 20150526
  34. INSULIN [Concomitant]
     Active Substance: INSULIN NOS
     Dosage: 8 IU, SOS
     Route: 042
     Dates: start: 20150603, end: 20150603
  35. PENICILLIN [Concomitant]
     Active Substance: PENICILLIN
     Indication: INFECTION
     Dosage: 8000000 IU, BID
     Route: 042
     Dates: start: 20150817, end: 20150828
  36. PANTOPRAZOLE SODIUM. [Concomitant]
     Active Substance: PANTOPRAZOLE SODIUM
     Dosage: 40 MG, SOS
     Route: 042
     Dates: start: 20150526, end: 20150526
  37. TACROLIMUS. [Suspect]
     Active Substance: TACROLIMUS
     Indication: PRODUCT USED FOR UNKNOWN INDICATION
     Dosage: 5 MG, QD
     Route: 065
     Dates: start: 20150526, end: 20150527
  38. PIPERACILLIN AND TAZOBACTAM [Concomitant]
     Active Substance: PIPERACILLIN SODIUM\TAZOBACTAM SODIUM
     Indication: PRODUCT USED FOR UNKNOWN INDICATION
     Dosage: 2.25 G, BID
     Route: 042
     Dates: start: 20150526, end: 20150605
  39. BENZBROMARONE [Concomitant]
     Active Substance: BENZBROMARONE
     Indication: BLOOD URIC ACID INCREASED
     Dosage: 1 DF, QD
     Route: 048
     Dates: start: 20150710, end: 20150828
  40. RIBAVIRIN. [Concomitant]
     Active Substance: RIBAVIRIN
     Indication: ANTIVIRAL TREATMENT
     Dosage: 0.5 G, SOS
     Route: 042
     Dates: start: 20150816, end: 20150816
  41. SODIUM CHLORIDE + GLUCOSE [Concomitant]
     Indication: FLUID IMBALANCE
     Dosage: 1000 ML, SOS
     Route: 042
     Dates: start: 20150530, end: 20150530
  42. SODIUM CHLORIDE + GLUCOSE [Concomitant]
     Dosage: 2000 ML, SOS
     Route: 042
     Dates: start: 20150526, end: 20150526
  43. CALCIUM GLUCONATE. [Concomitant]
     Active Substance: CALCIUM GLUCONATE
     Indication: ELECTROLYTE IMBALANCE
     Dosage: 20 ML, PRN
     Route: 042
     Dates: start: 20150531, end: 20150531
  44. ISOSORBIDE MONONITRATE. [Concomitant]
     Active Substance: ISOSORBIDE MONONITRATE
     Indication: HYPERTENSION
     Dosage: 20 MG, SOS
     Route: 042
     Dates: start: 20150526, end: 20150526
  45. INSULIN [Concomitant]
     Active Substance: INSULIN NOS
     Dosage: 12 IU, SOS
     Route: 042
     Dates: start: 20150527, end: 20150527
  46. INSULIN [Concomitant]
     Active Substance: INSULIN NOS
     Indication: PROPHYLAXIS
     Dosage: 32 IU, SOS
     Route: 042
     Dates: start: 20150529, end: 20150529
  47. INSULIN [Concomitant]
     Active Substance: INSULIN NOS
     Dosage: 80 IU, SOS
     Route: 042
     Dates: start: 20150617, end: 20150617
  48. ZUO KE [Concomitant]
     Active Substance: LEVOFLOXACIN
     Dosage: 0.3 G, PRN
     Route: 042
     Dates: start: 20150701, end: 20150701
  49. PENICILLIN [Concomitant]
     Active Substance: PENICILLIN
     Dosage: 16 MIU, SOS
     Route: 023
     Dates: start: 20150817, end: 20150817
  50. PIPERACILLIN AND TAZOBACTAM [Concomitant]
     Active Substance: PIPERACILLIN SODIUM\TAZOBACTAM SODIUM
     Indication: INFECTION
     Dosage: 2.25 G, BID
     Route: 042
     Dates: start: 20150526, end: 20150605
  51. LIPITOR [Concomitant]
     Active Substance: ATORVASTATIN CALCIUM
     Dosage: 20 MG, QD
     Route: 048
     Dates: start: 20150828
  52. FUROSEMIDE. [Concomitant]
     Active Substance: FUROSEMIDE
     Dosage: 20 MG, SOS
     Route: 042
     Dates: start: 20150828, end: 20150828
  53. FUROSEMIDE. [Concomitant]
     Active Substance: FUROSEMIDE
     Dosage: 40 MG, SOS
     Route: 042
     Dates: start: 20150529, end: 20150529
  54. FUROSEMIDE. [Concomitant]
     Active Substance: FUROSEMIDE
     Dosage: 80 MG, SOS
     Route: 042
     Dates: start: 20150525, end: 20150525
  55. POTASSIUM CHLORIDE. [Concomitant]
     Active Substance: POTASSIUM CHLORIDE
     Dosage: 10 ML (SINGLE DOSE), SOS
     Route: 042
     Dates: start: 20150529, end: 20150529
  56. LIPITOR [Concomitant]
     Active Substance: ATORVASTATIN CALCIUM
     Indication: LIPIDS INCREASED
     Dosage: 20 MG, QD
     Route: 048
     Dates: start: 20150710, end: 20150827
  57. DIOVAN [Concomitant]
     Active Substance: VALSARTAN
     Indication: HYPERTENSION
     Dosage: 80 MG, SOS
     Route: 048
     Dates: start: 20150527, end: 20150527
  58. COMPOUND SODIUM CHLORIDE [Concomitant]
     Dosage: 1000 ML, SOS
     Route: 042
     Dates: start: 20150530, end: 20150530
  59. COMPOUND SODIUM CHLORIDE [Concomitant]
     Dosage: 500 ML, SOS
     Route: 042
     Dates: start: 20150531, end: 20150531
  60. COMPOUND SODIUM CHLORIDE [Concomitant]
     Dosage: 500 ML, SOS
     Route: 042
     Dates: start: 20150615, end: 20150615
  61. SODIUM CHLORIDE + GLUCOSE [Concomitant]
     Dosage: 1000 ML, SOS
     Route: 042
     Dates: start: 20150622, end: 20150622
  62. PANTOPRAZOLE SODIUM. [Concomitant]
     Active Substance: PANTOPRAZOLE SODIUM
     Dosage: 40 MG, SOS
     Route: 042
     Dates: start: 20150617, end: 20150617
  63. LEVOFLOXACIN HYDROCHLORIDE [Concomitant]
     Active Substance: LEVOFLOXACIN HYDROCHLORIDE
     Indication: INFLAMMATION
     Dosage: 0.3 G, SOS
     Route: 042
     Dates: start: 20150630, end: 20150630
  64. FUROSEMIDE. [Concomitant]
     Active Substance: FUROSEMIDE
     Dosage: 20 MG, SOS
     Route: 042
     Dates: start: 20150602, end: 20150602
  65. MYFORTIC [Suspect]
     Active Substance: MYCOPHENOLATE SODIUM
     Indication: RENAL TRANSPLANT
     Dosage: 1440 MG, QD
     Route: 065
     Dates: start: 20150526, end: 20150531
  66. PREDNISONE. [Suspect]
     Active Substance: PREDNISONE
     Dosage: 5 MG, QD
     Route: 065
     Dates: start: 20150610
  67. GANCICLOVIR. [Concomitant]
     Active Substance: GANCICLOVIR
     Dosage: 250 MG, SOS
     Route: 042
     Dates: start: 20150608, end: 20150608
  68. COMPOUND SODIUM CHLORIDE [Concomitant]
     Dosage: 1000 ML, SOS
     Route: 042
     Dates: start: 20150709, end: 20150709
  69. RIBAVIRIN. [Concomitant]
     Active Substance: RIBAVIRIN
     Dosage: 0.5 G, QD
     Route: 042
     Dates: start: 20150817, end: 20150822
  70. SODIUM CHLORIDE + GLUCOSE [Concomitant]
     Dosage: 500 ML, SOS
     Route: 042
     Dates: start: 20150531, end: 20150531
  71. TETRACAINE HYDROCHLORIDE. [Concomitant]
     Active Substance: TETRACAINE HYDROCHLORIDE
     Indication: STENT REMOVAL
     Dosage: 10 G, SOS
     Route: 042
     Dates: start: 20150828, end: 20150828
  72. INSULIN [Concomitant]
     Active Substance: INSULIN NOS
     Dosage: 12 IU, SOS
     Route: 042
     Dates: start: 20150621, end: 20150621
  73. INSULIN [Concomitant]
     Active Substance: INSULIN NOS
     Dosage: 12 IU, SOS
     Route: 042
     Dates: start: 20150622, end: 20150622
  74. IRON SUCROSE [Concomitant]
     Active Substance: IRON SUCROSE
     Indication: ANAEMIA
     Dosage: 100 MG, QW
     Route: 042
     Dates: start: 20150525, end: 20150526
  75. PANTOPRAZOLE SODIUM. [Concomitant]
     Active Substance: PANTOPRAZOLE SODIUM
     Dosage: 40 MG, SOS
     Route: 042
     Dates: start: 20150528, end: 20150528
  76. PANTOPRAZOLE SODIUM. [Concomitant]
     Active Substance: PANTOPRAZOLE SODIUM
     Dosage: 40 MG, SOS
     Route: 042
     Dates: start: 20150615, end: 20150615
  77. LIPITOR [Concomitant]
     Active Substance: ATORVASTATIN CALCIUM
     Indication: LIPIDS INCREASED
     Dosage: 20 MG, QD
     Route: 048
     Dates: start: 20150710, end: 20150827
  78. BASILIXIMAB [Suspect]
     Active Substance: BASILIXIMAB
     Indication: PRODUCT USED FOR UNKNOWN INDICATION
     Dosage: 20 MG, QD
     Route: 065
     Dates: start: 20150526, end: 20150526
  79. METHYLPREDNISOLONE. [Suspect]
     Active Substance: METHYLPREDNISOLONE
     Indication: KIDNEY TRANSPLANT REJECTION
     Dosage: 500 MG, QD
     Route: 065
     Dates: start: 20150525, end: 20150529
  80. METHYLPREDNISOLONE. [Suspect]
     Active Substance: METHYLPREDNISOLONE
     Dosage: 500 MG, QD
     Route: 065
     Dates: start: 20150615, end: 20150617
  81. COMPOUND SODIUM CHLORIDE [Concomitant]
     Dosage: 500 ML, SOS
     Route: 042
     Dates: start: 20150528, end: 20150528
  82. COMPOUND SODIUM CHLORIDE [Concomitant]
     Dosage: 500 ML, SOS
     Route: 042
     Dates: start: 20150617, end: 20150617
  83. SODIUM CHLORIDE + GLUCOSE [Concomitant]
     Dosage: 500 ML, SOS
     Route: 042
     Dates: start: 20150528, end: 20150528
  84. LEVOFLOXACIN HYDROCHLORIDE [Concomitant]
     Active Substance: LEVOFLOXACIN HYDROCHLORIDE
     Indication: INFECTION
     Dosage: 0.3 G, QD
     Route: 042
     Dates: start: 20150701, end: 20150708
  85. ERYTHROPOIETIN HUMAN [Concomitant]
     Indication: ANAEMIA
     Dosage: 10000 IU, QW
     Route: 042
     Dates: start: 20150525, end: 20150526
  86. MYFORTIC [Suspect]
     Active Substance: MYCOPHENOLATE SODIUM
     Dosage: 1080 MG, QD
     Route: 065
     Dates: start: 20150601
  87. PREDNISONE. [Suspect]
     Active Substance: PREDNISONE
     Dosage: 10 MG, QD
     Route: 065
     Dates: start: 20150606, end: 20150609
  88. AMBROXOL HYDROCHLORIDE [Concomitant]
     Active Substance: AMBROXOL HYDROCHLORIDE
     Indication: PRODUCTIVE COUGH
     Dosage: 30 MG, BID
     Route: 055
     Dates: start: 20150526, end: 20160605
  89. ALLOPURINOL. [Concomitant]
     Active Substance: ALLOPURINOL
     Indication: BLOOD URIC ACID INCREASED
     Dosage: 100 MG, QD
     Route: 048
     Dates: start: 20150816, end: 20150828
  90. COMPOUND SODIUM CHLORIDE [Concomitant]
     Dosage: 500 ML, SOS
     Route: 042
     Dates: start: 20150527, end: 20150527
  91. COMPOUND SODIUM CHLORIDE [Concomitant]
     Dosage: 1000 ML, SOS
     Route: 042
     Dates: start: 20150708, end: 20150708
  92. HEPARIN SODIUM. [Concomitant]
     Active Substance: HEPARIN SODIUM
     Indication: ANTICOAGULANT THERAPY
     Dosage: 2 ML, MEDICATION DURING SURGERY
     Route: 042
     Dates: start: 20150525, end: 20150525
  93. ADENOSINE CYCLOPHOSPHATE [Concomitant]
     Active Substance: ADENOSINE
     Indication: NUTRITIONAL SUPPLEMENTATION
     Dosage: 80 MG, QW
     Route: 042
     Dates: start: 20150525, end: 20150526
  94. RIBAVIRIN. [Concomitant]
     Active Substance: RIBAVIRIN
     Dosage: 0.5 G, SOS
     Route: 042
     Dates: start: 20150817, end: 20150817
  95. ATROPINE. [Concomitant]
     Active Substance: ATROPINE
     Indication: ANAESTHETIC PREMEDICATION
     Dosage: 0.5 MG, SOS
     Route: 030
     Dates: start: 20150525, end: 20150525
  96. ALPROSTADIL. [Concomitant]
     Active Substance: ALPROSTADIL
     Indication: ANGIOPATHY
     Dosage: 10 UG, TID
     Route: 042
     Dates: start: 20150626, end: 20150626
  97. INSULIN [Concomitant]
     Active Substance: INSULIN NOS
     Dosage: 8 IU, SOS
     Route: 042
     Dates: start: 20150623, end: 20150623
  98. PENICILLIN [Concomitant]
     Active Substance: PENICILLIN
     Indication: SKIN TEST
     Dosage: 1.6 MIU, SOS
     Route: 023
     Dates: start: 20150816, end: 20150816
  99. PANTOPRAZOLE SODIUM. [Concomitant]
     Active Substance: PANTOPRAZOLE SODIUM
     Indication: PROPHYLAXIS
     Dosage: 40 MG, QD
     Route: 042
     Dates: start: 20150526, end: 20150605
  100. LEVOFLOXACIN HYDROCHLORIDE [Concomitant]
     Active Substance: LEVOFLOXACIN HYDROCHLORIDE
     Dosage: 0.3 G, SOS
     Route: 042
     Dates: start: 20150701, end: 20150701
  101. FUROSEMIDE. [Concomitant]
     Active Substance: FUROSEMIDE
     Dosage: 40 MG, SOS
     Route: 042
     Dates: start: 20150528, end: 20150528

REACTIONS (5)
  - Epididymitis [Recovering/Resolving]
  - Pyrexia [Recovering/Resolving]
  - Kidney transplant rejection [Recovering/Resolving]
  - Procedural pain [Recovering/Resolving]
  - Neutrophil count increased [Unknown]

NARRATIVE: CASE EVENT DATE: 20150527
